FAERS Safety Report 23376629 (Version 5)
Quarter: 2024Q4

REPORT INFORMATION
  Report Type: Spontaneous
  Country: PL (occurrence: PL)
  Receive Date: 20240108
  Receipt Date: 20241119
  Transmission Date: 20250115
  Serious: Yes (Hospitalization)
  Sender: SANDOZ
  Company Number: PL-ROCHE-3412869

PATIENT
  Age: 66 Year
  Sex: Female
  Weight: 48 kg

DRUGS (45)
  1. CYCLOPHOSPHAMIDE [Suspect]
     Active Substance: CYCLOPHOSPHAMIDE
     Indication: Hypertension
     Dosage: 1116.570MG/M2 TIW
     Route: 042
     Dates: start: 20230810
  2. CYCLOPHOSPHAMIDE [Suspect]
     Active Substance: CYCLOPHOSPHAMIDE
     Dosage: START DATE OF MOST RECENT DOSE OF STUDY DRUG PRIOR TO SAE 10-AUG-2023
     Route: 042
  3. DOXORUBICIN [Suspect]
     Active Substance: DOXORUBICIN
     Dosage: 74.440MG/M2 TIW
     Route: 042
     Dates: start: 20230810
  4. DOXORUBICIN [Suspect]
     Active Substance: DOXORUBICIN
     Indication: Diffuse large B-cell lymphoma
     Dosage: START DATE OF MOST RECENT DOSE OF STUDY DRUG PRIOR TO SAE 10-AUG-2023
     Route: 042
  5. METHYLPREDNISOLONE [Suspect]
     Active Substance: METHYLPREDNISOLONE
     Indication: Diffuse large B-cell lymphoma
     Dosage: UNK
     Route: 065
  6. PREDNISOLONE [Suspect]
     Active Substance: PREDNISOLONE
     Indication: Diffuse large B-cell lymphoma
     Dosage: DOSE LAST STUDY DRUG ADMIN PRIOR AE
     Route: 042
  7. PREDNISONE [Suspect]
     Active Substance: PREDNISONE
     Indication: Diffuse large B-cell lymphoma
     Dosage: START DATE AND END DATE  OF MOST RECENT DOSE OF STUDY DRUG PRIOR TO SAE 14-AUG-2023
     Route: 042
     Dates: start: 20230810
  8. RITUXIMAB [Suspect]
     Active Substance: RITUXIMAB
     Dosage: START DATE OF MOST RECENT DOSE OF STUDY DRUGPRIOR TO SAE10-AUG-2023
     Route: 042
  9. RITUXIMAB [Suspect]
     Active Substance: RITUXIMAB
     Indication: Diffuse large B-cell lymphoma
     Dosage: 558.290MG/M2 TIW
     Route: 042
     Dates: start: 20230810
  10. VINCRISTINE [Suspect]
     Active Substance: VINCRISTINE
     Indication: Diffuse large B-cell lymphoma
     Dosage: START DATE AND END DATE  OF MOST RECENT DOSE OF STUDY DRUG PRIOR TO SAE 10-AUG-2023
     Route: 042
     Dates: start: 20230810
  11. AMLODIPINE BESYLATE [Concomitant]
     Active Substance: AMLODIPINE BESYLATE
     Indication: Hypertension
     Dosage: 5 MG, QD
     Route: 065
     Dates: start: 20230802
  12. AMLODIPINE BESYLATE [Concomitant]
     Active Substance: AMLODIPINE BESYLATE
     Dosage: 5.000MG QD
     Route: 048
     Dates: start: 20230802
  13. AMOXICILLIN [Concomitant]
     Active Substance: AMOXICILLIN
     Indication: Chronic gastritis
     Dosage: 1000.000MG
     Route: 065
     Dates: start: 20230801
  14. AMOXICILLIN [Concomitant]
     Active Substance: AMOXICILLIN
     Dosage: 1000.000MG
     Route: 065
     Dates: start: 20230801
  15. AMOXICILLIN [Concomitant]
     Active Substance: AMOXICILLIN
     Dosage: 1000.000MG
     Route: 065
     Dates: start: 20230801
  16. CONTROLOC [Concomitant]
     Active Substance: PANTOPRAZOLE SODIUM
     Dosage: 40.000MG QD
     Route: 048
     Dates: start: 202304
  17. CONTROLOC [Concomitant]
     Active Substance: PANTOPRAZOLE SODIUM
     Indication: Chronic gastritis
     Dosage: 40.000MG QD
     Route: 065
     Dates: start: 202304
  18. PREDNISONE [Concomitant]
     Active Substance: PREDNISONE
     Indication: Product used for unknown indication
     Dosage: UNK
     Route: 065
  19. Glibetic [Concomitant]
     Indication: Type 2 diabetes mellitus
     Dosage: UNK
     Route: 065
     Dates: start: 2015
  20. INSULINA ACTRAPID [Concomitant]
     Indication: Type 2 diabetes mellitus
     Dosage: UNK
     Route: 065
  21. CLARITHROMYCIN [Concomitant]
     Active Substance: CLARITHROMYCIN
     Dosage: 500.000MG
     Route: 048
     Dates: start: 20230801
  22. CLARITHROMYCIN [Concomitant]
     Active Substance: CLARITHROMYCIN
     Indication: Chronic gastritis
     Dosage: 500.000MG
     Route: 065
     Dates: start: 20230801
  23. METRONIDAZOLE [Concomitant]
     Active Substance: METRONIDAZOLE
     Indication: Chronic gastritis
     Dosage: 500 MG
     Route: 065
     Dates: start: 20230801
  24. METRONIDAZOLE [Concomitant]
     Active Substance: METRONIDAZOLE
     Dosage: 500.000MG
     Route: 048
     Dates: start: 20230801
  25. SODIUM CHLORIDE [Concomitant]
     Active Substance: SODIUM CHLORIDE
     Dosage: 1000.000ML
     Route: 042
     Dates: start: 20230729
  26. SODIUM CHLORIDE [Concomitant]
     Active Substance: SODIUM CHLORIDE
     Indication: Product used for unknown indication
     Dosage: 1000.000DF
     Route: 065
     Dates: start: 20230729
  27. SODIUM CHLORIDE [Concomitant]
     Active Substance: SODIUM CHLORIDE
     Dosage: 1000.000DF
     Route: 065
     Dates: start: 20230729
  28. SODIUM CHLORIDE [Concomitant]
     Active Substance: SODIUM CHLORIDE
     Dosage: 1000.000DF
     Route: 065
     Dates: start: 20230729
  29. SODIUM CHLORIDE [Concomitant]
     Active Substance: SODIUM CHLORIDE
     Dosage: 1000.000DF
     Route: 065
     Dates: start: 20230729
  30. SODIUM CHLORIDE [Concomitant]
     Active Substance: SODIUM CHLORIDE
     Dosage: 1000.000DF
     Route: 065
     Dates: start: 20230729
  31. SODIUM CHLORIDE [Concomitant]
     Active Substance: SODIUM CHLORIDE
     Dosage: 1000.000DF
     Route: 065
     Dates: start: 20230729
  32. SODIUM CHLORIDE [Concomitant]
     Active Substance: SODIUM CHLORIDE
     Dosage: 1000.000DF
     Route: 065
     Dates: start: 20230729
  33. SODIUM CHLORIDE [Concomitant]
     Active Substance: SODIUM CHLORIDE
     Dosage: 1000.000DF
     Route: 065
     Dates: start: 20230729
  34. SODIUM CHLORIDE [Concomitant]
     Active Substance: SODIUM CHLORIDE
     Dosage: 1000.000DF
     Route: 065
     Dates: start: 20230729
  35. SODIUM CHLORIDE [Concomitant]
     Active Substance: SODIUM CHLORIDE
     Dosage: 1000.000DF
     Route: 065
     Dates: start: 20230729
  36. SODIUM CHLORIDE [Concomitant]
     Active Substance: SODIUM CHLORIDE
     Dosage: 1000.000DF
     Route: 065
     Dates: start: 20230729
  37. MEDICAL FOOD [Concomitant]
     Active Substance: MEDICAL FOOD
     Indication: Gastrointestinal tube insertion
     Dosage: 1000 DF QD
     Route: 065
     Dates: start: 20230725
  38. MEDICAL FOOD [Concomitant]
     Active Substance: MEDICAL FOOD
     Dosage: 1000 DF, QD
     Route: 065
     Dates: start: 20230729
  39. PERFALGAN [Concomitant]
     Active Substance: ACETAMINOPHEN
     Indication: Abdominal pain
     Route: 065
  40. ROSUVASTATIN [Concomitant]
     Active Substance: ROSUVASTATIN
     Dosage: 5.000MG
     Route: 048
     Dates: start: 20230802
  41. ROSUVASTATIN [Concomitant]
     Active Substance: ROSUVASTATIN
     Indication: Hypertriglyceridaemia
     Dosage: 5.000MG
     Route: 065
     Dates: start: 20230802
  42. METFORMIN HYDROCHLORIDE [Concomitant]
     Active Substance: METFORMIN HYDROCHLORIDE
     Indication: Type 2 diabetes mellitus
     Dosage: UNK
     Route: 065
  43. TELMISARTAN [Concomitant]
     Active Substance: TELMISARTAN
     Dosage: 80.000MG
     Route: 048
     Dates: start: 20230802
  44. TELMISARTAN [Concomitant]
     Active Substance: TELMISARTAN
     Indication: Hypertension
     Dosage: 80.000MG
     Route: 065
     Dates: start: 20230802
  45. BUPRENORPHINE [Concomitant]
     Active Substance: BUPRENORPHINE
     Indication: Product used for unknown indication
     Dosage: UNK
     Route: 065

REACTIONS (1)
  - Wound abscess [Not Recovered/Not Resolved]

NARRATIVE: CASE EVENT DATE: 20230825
